FAERS Safety Report 9128316 (Version 1)
Quarter: 2013Q1

REPORT INFORMATION
  Report Type: Spontaneous
  Country: US (occurrence: US)
  Receive Date: 20130228
  Receipt Date: 20130228
  Transmission Date: 20140127
  Serious: No
  Sender: FDA-Public Use
  Company Number: US-ABBOTT-13P-163-1046824-00

PATIENT
  Sex: Male
  Weight: 118.04 kg

DRUGS (5)
  1. ANDROGEL 1.62% [Suspect]
     Indication: BLOOD TESTOSTERONE DECREASED
     Dosage: 2 PUMPS (1 ON EA. SHUOLDER)
     Route: 061
     Dates: start: 201210, end: 201301
  2. ANDROGEL 1.62% [Suspect]
     Dosage: 4 PUMPS
     Route: 061
     Dates: start: 20130102
  3. LIPITOR [Concomitant]
     Indication: BLOOD CHOLESTEROL INCREASED
  4. VITAMIN D [Concomitant]
     Indication: VITAMIN SUPPLEMENTATION
  5. MULTIVITAMIN [Concomitant]
     Indication: VITAMIN SUPPLEMENTATION

REACTIONS (3)
  - Drug ineffective [Not Recovered/Not Resolved]
  - Asthenia [Recovering/Resolving]
  - Asthenia [Not Recovered/Not Resolved]
